FAERS Safety Report 8825377 (Version 4)
Quarter: 2013Q2

REPORT INFORMATION
  Report Type: Report from Study
  Country: JP (occurrence: JP)
  Receive Date: 20121004
  Receipt Date: 20130610
  Transmission Date: 20140414
  Serious: Yes (Hospitalization, Other)
  Sender: FDA-Public Use
  Company Number: JP-VERTEX PHARMACEUTICAL INC.-AE-2012-006836

PATIENT
  Age: 64 Year
  Sex: Female

DRUGS (15)
  1. VX-950 (TELAPREVIR) [Suspect]
     Indication: CHRONIC HEPATITIS C
     Dosage: 1500 MG, QD
     Route: 048
     Dates: start: 20120321, end: 20120524
  2. REBETOL [Suspect]
     Indication: CHRONIC HEPATITIS C
     Dosage: 400 MG, QD
     Route: 048
     Dates: start: 20120321, end: 20120411
  3. REBETOL [Suspect]
     Dosage: 200 MG, QD
     Route: 048
     Dates: start: 20120412, end: 20120524
  4. REBETOL [Suspect]
     Dosage: 200 MG, QD
     Route: 048
     Dates: start: 20120620, end: 20120731
  5. REBETOL [Suspect]
     Dosage: 300 MG, QD
     Route: 048
     Dates: start: 20120801
  6. PEGINTRON [Suspect]
     Indication: CHRONIC HEPATITIS C
     Dosage: 1.5 ?G/KG, QW
     Route: 058
     Dates: start: 20120321, end: 20120516
  7. PEGINTRON [Suspect]
     Dosage: 1.5 ?G/KG, QW
     Route: 058
     Dates: start: 20120620
  8. THYRADIN S [Concomitant]
     Dosage: 75 MG, QD
     Route: 048
  9. BLOPRESS [Concomitant]
     Dosage: 4 MG, QD
     Route: 048
  10. FAMOSTAGINE [Concomitant]
     Dosage: 20 MG, QD
     Route: 048
  11. SELBEX [Concomitant]
     Dosage: 1.5 G, QD
     Route: 048
     Dates: end: 20120523
  12. URSO [Concomitant]
     Dosage: 600 MG, QD
     Route: 048
  13. LOXONIN [Concomitant]
     Dosage: 60 MG/ DAY, PRN
     Route: 048
     Dates: start: 20120321
  14. ZYLORIC [Concomitant]
     Dosage: 100 MG, QD
     Route: 048
     Dates: end: 20120523
  15. NAUZELIN [Concomitant]
     Dosage: 10 MG/ DAY, PRN
     Route: 048
     Dates: end: 20120523

REACTIONS (2)
  - Decreased appetite [Recovered/Resolved]
  - Anaemia [Recovered/Resolved]
